FAERS Safety Report 9440371 (Version 1)
Quarter: 2013Q3

REPORT INFORMATION
  Report Type: Spontaneous
  Country: IT (occurrence: IT)
  Receive Date: 20130805
  Receipt Date: 20130805
  Transmission Date: 20140515
  Serious: Yes (Hospitalization, Other)
  Sender: FDA-Public Use
  Company Number: IT-TEVA-421436ISR

PATIENT
  Age: 84 Year
  Sex: Female

DRUGS (9)
  1. CIPROFLOXACIN [Suspect]
     Indication: SYNCOPE
     Dosage: 1000 MILLIGRAM DAILY;
     Dates: start: 201210
  2. CIPROFLOXACIN [Interacting]
     Indication: PYREXIA
  3. CIPROFLOXACIN [Interacting]
     Indication: URINARY TRACT INFECTION
  4. METHOTREXATE [Interacting]
     Indication: RHEUMATOID ARTHRITIS
     Route: 030
  5. VENLAFAXINE [Suspect]
     Indication: COGNITIVE DISORDER
     Dosage: 75 MILLIGRAM DAILY;
  6. FUROSEMIDE [Concomitant]
     Indication: HYPERTENSION
  7. VALSARTAN/HYDROCHLOROTHIAZIDE [Concomitant]
     Indication: HYPERTENSION
  8. ALLOPURINOL [Concomitant]
     Indication: HYPERURICAEMIA
     Dosage: 300 MILLIGRAM DAILY;
  9. ALENDRONIC ACID [Concomitant]
     Indication: OSTEOPOROSIS
     Dosage: 10 MILLIGRAM DAILY;

REACTIONS (3)
  - Pancytopenia [Not Recovered/Not Resolved]
  - Drug interaction [Unknown]
  - Lumbar puncture abnormal [Unknown]
